FAERS Safety Report 5145234-6 (Version None)
Quarter: 2006Q4

REPORT INFORMATION
  Report Type: 
  Country: None (occurrence: None)
  Receive Date: 20060914
  Receipt Date: 20060605
  Transmission Date: 20070319
  Serious: No
  Sender: FDA-Public Use
  Company Number: 0206023

PATIENT
  Age: 75 Year
  Sex: Female
  Weight: 75 kg

DRUGS (4)
  1. DEPODUR [Suspect]
     Indication: POSTOPERATIVE ANALGESIA
     Dosage: (10 MG,1 ONCE),EPIDURAL
     Route: 008
     Dates: start: 20060605, end: 20060605
  2. GLUCOSAMINE (GLUCOSAMINE) [Concomitant]
  3. CHONDROITIN [Concomitant]
  4. ANTIHYPERTENSIVE DRUG [Concomitant]

REACTIONS (3)
  - APNOEA [None]
  - RESPIRATORY DEPRESSION [None]
  - RESPIRATORY RATE DECREASED [None]
